FAERS Safety Report 5362180-3 (Version None)
Quarter: 2007Q2

REPORT INFORMATION
  Report Type: 
  Country: None (occurrence: None)
  Receive Date: 20070530
  Receipt Date: 20070309
  Transmission Date: 20071010
  Serious: No
  Sender: FDA-Public Use
  Company Number: 2007PV031405

PATIENT
  Age: 69 Year
  Sex: Female
  Weight: 95.2554 kg

DRUGS (8)
  1. BYETTA [Suspect]
     Indication: DIABETES MELLITUS NON-INSULIN-DEPENDENT
     Dosage: 10 MCG; BID; SC, 5 MCG; BID; SC
     Route: 058
     Dates: start: 20050701
  2. COUMADIN [Suspect]
     Indication: PULMONARY THROMBOSIS
     Dosage: 2.5 MG; QW; PO; PO
     Route: 048
     Dates: start: 20040101, end: 20070307
  3. COUMADIN [Suspect]
     Indication: PULMONARY THROMBOSIS
     Dosage: 2.5 MG; QW; PO; PO
     Route: 048
     Dates: start: 20070301
  4. AVANDIA [Concomitant]
  5. GLIPIZIDE [Concomitant]
  6. METFORMIN HCL [Concomitant]
  7. ENBREL [Concomitant]
  8. HUMIRA [Concomitant]

REACTIONS (5)
  - BLOOD GLUCOSE INCREASED [None]
  - DRUG INEFFECTIVE [None]
  - EYE HAEMORRHAGE [None]
  - INTERNATIONAL NORMALISED RATIO INCREASED [None]
  - WEIGHT DECREASED [None]
